FAERS Safety Report 16525734 (Version 2)
Quarter: 2019Q3

REPORT INFORMATION
  Report Type: Other
  Country: IE (occurrence: IE)
  Receive Date: 20190703
  Receipt Date: 20190717
  Transmission Date: 20191004
  Serious: Yes (Other)
  Sender: FDA-Public Use
  Company Number: IE-CELLTRION INC.-2019IE022174

PATIENT

DRUGS (10)
  1. REMSIMA [Suspect]
     Active Substance: INFLIXIMAB
     Indication: CROHN^S DISEASE
     Dosage: 550 MG, FIRST DOSE - APPROXIMATELY 85% OF INFUSION GIVEN BEFORE STOPPED
     Route: 042
     Dates: start: 20190517
  2. FEXOFENADINE [Concomitant]
     Active Substance: FEXOFENADINE HYDROCHLORIDE
     Dosage: LONG TERM USE - ONGOING - NO RECENT CHANGES TO MEDICATION
  3. XYZAL [Concomitant]
     Active Substance: LEVOCETIRIZINE DIHYDROCHLORIDE
     Dosage: LONG TERM USE - ONGOING - NO RECENT CHANGES TO MEDICATION
  4. LEXAPRO [Concomitant]
     Active Substance: ESCITALOPRAM OXALATE
     Dosage: LONG TERM USE - ONGOING - NO RECENT CHANGES TO MEDICATION
  5. WATER FOR INJECTIONS [Suspect]
     Active Substance: WATER
     Indication: MEDICATION DILUTION
     Dosage: APPROXIMATELY 85% OF INFUSION GIVEN BEFORE STOPPED (60ML OF 100ML DOSE GIVEN)
     Route: 042
     Dates: start: 20190517
  6. TRADOL SR [Concomitant]
     Dosage: LONG TERM USE - ONGOING - NO RECENT CHANGES TO MEDICATION
  7. SODIUM CHLORIDE. [Suspect]
     Active Substance: SODIUM CHLORIDE
     Indication: INFUSION
     Dosage: 250 ML, APPROXIMATELY 85% OF INFUSION GIVEN BEFORE STOPPED
     Route: 042
     Dates: start: 20190517
  8. AMITRIPTYLINE (GENERIC) [Concomitant]
     Dosage: LONG TERM USE - ONGOING - NO RECENT CHANGES TO MEDICATION
  9. ZANTAC [Concomitant]
     Active Substance: RANITIDINE HYDROCHLORIDE
     Dosage: LONG TERM USE - ONGOING - NO RECENT CHANGES TO MEDICATION
  10. ESOMEPRAZOLE (G) [Concomitant]
     Dosage: LONG TERM USE - ONGOING - NO RECENT CHANGES TO MEDICATION

REACTIONS (2)
  - Heart rate increased [Recovered/Resolved]
  - Dyskinesia [Recovered/Resolved]

NARRATIVE: CASE EVENT DATE: 20190517
